FAERS Safety Report 12612445 (Version 3)
Quarter: 2016Q3

REPORT INFORMATION
  Report Type: Spontaneous
  Country: US (occurrence: US)
  Receive Date: 20160801
  Receipt Date: 20160824
  Transmission Date: 20161109
  Serious: No
  Sender: FDA-Public Use
  Company Number: US-PFIZER INC-2016347043

PATIENT
  Age: 8 Year
  Sex: Male
  Weight: 25 kg

DRUGS (6)
  1. NATURE^S SUNSHINE PROBIOTIC [Concomitant]
     Indication: NUTRITIONAL SUPPLEMENTATION
     Dosage: 1-2 CAPSULES, ONCE IN THE MORNING
     Route: 048
  2. DR. MERCOLA CHILDREN^S MULTIVITAMINS CHEWABLE [Concomitant]
     Indication: NUTRITIONAL SUPPLEMENTATION
     Dosage: UNK, DAILY IN THE MORNING
     Route: 048
  3. SUPER OMEGA 3 [Concomitant]
     Indication: ATTENTION DEFICIT/HYPERACTIVITY DISORDER
     Dosage: 2 DF, 1X/DAY IN THE MORNING
     Route: 048
  4. QUILLIVANT XR [Suspect]
     Active Substance: METHYLPHENIDATE HYDROCHLORIDE
     Indication: ATTENTION DEFICIT/HYPERACTIVITY DISORDER
     Dosage: 4 ML, UNK
     Route: 048
  5. QUILLIVANT XR [Suspect]
     Active Substance: METHYLPHENIDATE HYDROCHLORIDE
     Dosage: 8 ML, UNK
     Route: 048
  6. QUILLIVANT XR [Suspect]
     Active Substance: METHYLPHENIDATE HYDROCHLORIDE
     Dosage: 10 ML, DAILY (EACH MORNING)
     Route: 048
     Dates: start: 20150406, end: 20160712

REACTIONS (7)
  - Gingival disorder [Unknown]
  - Gingival ulceration [Unknown]
  - Loose tooth [Unknown]
  - Periodontal disease [Unknown]
  - Dry mouth [Not Recovered/Not Resolved]
  - Aphthous ulcer [Unknown]
  - Thirst [Not Recovered/Not Resolved]

NARRATIVE: CASE EVENT DATE: 201510
